FAERS Safety Report 4897941-8 (Version None)
Quarter: 2006Q1

REPORT INFORMATION
  Report Type: 
  Country: None (occurrence: None)
  Receive Date: 20060130
  Receipt Date: 20060116
  Transmission Date: 20060701
  Serious: Yes (Life-Threatening, Hospitalization)
  Sender: FDA-Public Use
  Company Number: GXKR2006GB00457

PATIENT
  Sex: Male
  Weight: 80 kg

DRUGS (7)
  1. AMPICILLIN [Suspect]
     Indication: INFECTION PROPHYLAXIS
     Dosage: 1 G
     Dates: start: 20051129, end: 20051129
  2. GENTAMICIN [Suspect]
     Indication: INFECTION PROPHYLAXIS
     Dosage: 240 MG
     Dates: start: 20051129, end: 20051129
  3. MIDAZOLAM HCL [Suspect]
     Indication: SEDATION
     Dosage: 4 MG, INTRAVENOUS
     Route: 042
     Dates: start: 20051129, end: 20051129
  4. GLYCINE 1.5% [Suspect]
     Dosage: INTRAVENOUS
     Route: 042
     Dates: start: 20051129, end: 20051129
  5. MARCAINE [Suspect]
     Indication: SEDATION
     Dosage: 310 MG, INTRAVENOUS
     Route: 042
     Dates: start: 20051129, end: 20051129
  6. ATENOLOL [Concomitant]
  7. PERINDOPRIL (PERINDOPRIL) [Concomitant]

REACTIONS (2)
  - ANGIONEUROTIC OEDEMA [None]
  - DISSEMINATED INTRAVASCULAR COAGULATION [None]
